FAERS Safety Report 8190200 (Version 3)
Quarter: 2012Q4

REPORT INFORMATION
  Report Type: 
  Country: US (occurrence: US)
  Receive Date: 20111019
  Receipt Date: 20120918
  Transmission Date: 20130627
  Serious: Yes (Other)
  Sender: FDA-Public Use
  Company Number: US-ROCHE-1003773

PATIENT
  Sex: Female

DRUGS (2)
  1. BONIVA [Suspect]
     Indication: OSTEOPOROSIS
     Route: 048
     Dates: end: 200812
  2. ALENDRONATE [Concomitant]
     Route: 048
     Dates: end: 2009

REACTIONS (6)
  - Tooth extraction [Unknown]
  - Device failure [Unknown]
  - Gingival disorder [Unknown]
  - Bone loss [Unknown]
  - Back pain [Unknown]
  - Osteonecrosis of jaw [Recovering/Resolving]
